FAERS Safety Report 18049856 (Version 2)
Quarter: 2020Q3

REPORT INFORMATION
  Report Type: Spontaneous
  Country: US (occurrence: US)
  Receive Date: 20200721
  Receipt Date: 20200724
  Transmission Date: 20201103
  Serious: Yes (Disabling, Other)
  Sender: FDA-Public Use
  Company Number: US-SA-2020SA187301

PATIENT

DRUGS (6)
  1. PRALUENT [Suspect]
     Active Substance: ALIROCUMAB
     Indication: HYPERCHOLESTEROLAEMIA
     Dosage: 75 MG, Q2W
     Route: 058
     Dates: start: 20200601, end: 20200615
  2. TRIAMCINOLONE [Concomitant]
     Active Substance: TRIAMCINOLONE
     Indication: SPINAL DISORDER
     Dosage: UNK
     Dates: start: 20200709
  3. MOBIC [Concomitant]
     Active Substance: MELOXICAM
     Indication: PRODUCT USED FOR UNKNOWN INDICATION
     Dosage: 7.5 MG, AS NECESSARY
     Route: 048
  4. VERAPAMIL [Concomitant]
     Active Substance: VERAPAMIL HYDROCHLORIDE
     Indication: PRODUCT USED FOR UNKNOWN INDICATION
     Dosage: 120 MG, BID
     Route: 048
  5. PRALUENT [Suspect]
     Active Substance: ALIROCUMAB
     Dosage: 75 MG, MONTHLY
     Route: 058
     Dates: start: 20200713
  6. HYDROCHLOROTHIAZIDE. [Concomitant]
     Active Substance: HYDROCHLOROTHIAZIDE
     Indication: PRODUCT USED FOR UNKNOWN INDICATION
     Dosage: 12.5 MG, QD
     Route: 048

REACTIONS (5)
  - Immobile [Recovered/Resolved]
  - Injection site mass [Unknown]
  - Pain [Recovered/Resolved]
  - Injection site pain [Unknown]
  - Decreased appetite [Unknown]

NARRATIVE: CASE EVENT DATE: 202006
